FAERS Safety Report 8247862 (Version 4)
Quarter: 2014Q1

REPORT INFORMATION
  Report Type: Report from Study
  Country: CA (occurrence: CA)
  Receive Date: 20111116
  Receipt Date: 20140224
  Transmission Date: 20141002
  Serious: Yes (Other)
  Sender: FDA-Public Use
  Company Number: PHHY2011CA72911

PATIENT
  Sex: Female

DRUGS (1)
  1. GILENYA [Suspect]
     Indication: RELAPSING-REMITTING MULTIPLE SCLEROSIS
     Dosage: 0.5 MG, DAIILY
     Route: 048
     Dates: start: 20110808

REACTIONS (4)
  - Coeliac disease [Unknown]
  - Heart rate decreased [Recovered/Resolved]
  - Full blood count decreased [Recovering/Resolving]
  - Nasopharyngitis [Unknown]
